FAERS Safety Report 4480674-X (Version None)
Quarter: 2004Q4

REPORT INFORMATION
  Report Type: 
  Country: None (occurrence: None)
  Receive Date: 20041021
  Receipt Date: 20041009
  Transmission Date: 20050328
  Serious: Yes (Hospitalization)
  Sender: FDA-Public Use
  Company Number: JP-JNJFOC-20040500861

PATIENT
  Sex: Female
  Weight: 37 kg

DRUGS (6)
  1. REMICADE [Suspect]
     Route: 041
     Dates: start: 20031009
  2. REMICADE [Suspect]
     Route: 041
     Dates: start: 20031009
  3. REMICADE [Suspect]
     Route: 041
     Dates: start: 20031009
  4. REMICADE [Suspect]
     Indication: ANAL FISTULA
     Route: 041
     Dates: start: 20031009
  5. REMICADE [Suspect]
     Indication: CROHN'S DISEASE
     Route: 041
     Dates: start: 20031009
  6. PENTASA [Concomitant]
     Indication: CROHN'S DISEASE
     Route: 049
     Dates: start: 20020727

REACTIONS (4)
  - ANAPHYLACTOID REACTION [None]
  - C-REACTIVE PROTEIN INCREASED [None]
  - HEPATOCELLULAR DAMAGE [None]
  - MALAISE [None]
